FAERS Safety Report 14726793 (Version 1)
Quarter: 2018Q2

REPORT INFORMATION
  Report Type: Spontaneous
  Country: FR (occurrence: FR)
  Receive Date: 20180406
  Receipt Date: 20180406
  Transmission Date: 20180711
  Serious: Yes (Other)
  Sender: FDA-Public Use
  Company Number: FR-MERCK KGAA-2045259

PATIENT
  Age: 49 Year
  Sex: Female

DRUGS (1)
  1. NOVOTHYROX [Suspect]
     Active Substance: LEVOTHYROXINE SODIUM
     Indication: PRODUCT USED FOR UNKNOWN INDICATION

REACTIONS (21)
  - Weight decreased [Recovered/Resolved]
  - Gamma-glutamyltransferase decreased [Recovered/Resolved]
  - Alopecia [Recovered/Resolved]
  - Muscular weakness [Recovered/Resolved]
  - Decreased interest [Recovered/Resolved]
  - Vitamin D decreased [None]
  - Loss of personal independence in daily activities [Recovered/Resolved]
  - Mood swings [Recovered/Resolved]
  - Mobility decreased [Recovered/Resolved]
  - Spinal cord herniation [Recovered/Resolved]
  - Blood thyroid stimulating hormone abnormal [Recovered/Resolved]
  - Personal relationship issue [Recovered/Resolved]
  - Eye irritation [Recovered/Resolved]
  - Loss of employment [None]
  - Muscle spasms [Recovered/Resolved]
  - Pain [Recovered/Resolved]
  - Apathy [Recovered/Resolved]
  - Asthenia [Recovered/Resolved]
  - Aggression [Recovered/Resolved]
  - Bed rest [Recovered/Resolved]
  - Fatigue [Recovered/Resolved]

NARRATIVE: CASE EVENT DATE: 2017
